FAERS Safety Report 12787660 (Version 1)
Quarter: 2016Q3

REPORT INFORMATION
  Report Type: Spontaneous
  Country: US (occurrence: US)
  Receive Date: 20160928
  Receipt Date: 20160928
  Transmission Date: 20161109
  Serious: No
  Sender: FDA-Public Use
  Company Number: US-GLAXOSMITHKLINE-US2016140260

PATIENT
  Age: 66 Year
  Sex: Male

DRUGS (1)
  1. LAMISIL AT CONTINUOUS SPRAY [Suspect]
     Active Substance: TERBINAFINE HYDROCHLORIDE
     Indication: TINEA CRURIS
     Dosage: UNK, AS DIRECTED
     Route: 061
     Dates: start: 20160921, end: 20160921

REACTIONS (3)
  - Skin burning sensation [Recovered/Resolved]
  - Application site erythema [Recovering/Resolving]
  - Application site pain [Unknown]

NARRATIVE: CASE EVENT DATE: 20160921
